FAERS Safety Report 11126760 (Version 1)
Quarter: 2015Q2

REPORT INFORMATION
  Report Type: Report from Study
  Country: US (occurrence: US)
  Receive Date: 20150520
  Receipt Date: 20150520
  Transmission Date: 20150821
  Serious: Yes (Other)
  Sender: FDA-Public Use
  Company Number: US-BAXTER-2015BAX026466

PATIENT
  Age: 2 Year
  Sex: Male

DRUGS (2)
  1. ADVATE [Suspect]
     Active Substance: ANTIHEMOPHILIC FACTOR, HUMAN RECOMBINANT
     Indication: PRODUCT USED FOR UNKNOWN INDICATION
     Route: 065
  2. NOVO SEVEN [Suspect]
     Active Substance: COAGULATION FACTOR VIIA (RECOMBINANT)
     Indication: HAEMORRHAGE
     Route: 065

REACTIONS (2)
  - Haemarthrosis [Unknown]
  - No therapeutic response [Unknown]
